FAERS Safety Report 6265257-3 (Version None)
Quarter: 2009Q3

REPORT INFORMATION
  Report Type: 
  Country: None (occurrence: None)
  Receive Date: 20090713
  Receipt Date: 20090702
  Transmission Date: 20100115
  Serious: Yes (Other)
  Sender: FDA-Public Use
  Company Number: JP-ALLERGAN-0909643US

PATIENT
  Age: 6 Year
  Sex: Female

DRUGS (2)
  1. ALESION SYRUP [Suspect]
     Indication: DRUG USE FOR UNKNOWN INDICATION
     Dosage: 1 G, QD
     Route: 048
     Dates: start: 20081226, end: 20090226
  2. DEPAKENE [Concomitant]
     Route: 048
     Dates: start: 20070223

REACTIONS (1)
  - CONVULSION [None]
